FAERS Safety Report 6213183-8 (Version None)
Quarter: 2009Q2

REPORT INFORMATION
  Report Type: 
  Country: None (occurrence: None)
  Receive Date: 20090603
  Receipt Date: 20090520
  Transmission Date: 20091009
  Serious: Yes (Other)
  Sender: FDA-Public Use
  Company Number: LV-NOVOPROD-287232

PATIENT
  Sex: Female
  Weight: 3.965 kg

DRUGS (2)
  1. LEVEMIR [Suspect]
     Indication: TYPE 1 DIABETES MELLITUS
     Dosage: 44 IU, QD
     Route: 064
     Dates: start: 20080404
  2. NOVORAPID [Suspect]
     Indication: TYPE 1 DIABETES MELLITUS
     Dosage: 6 IU, QD
     Route: 064
     Dates: start: 20080320

REACTIONS (1)
  - FOETAL DISTRESS SYNDROME [None]
